FAERS Safety Report 20131794 (Version 1)
Quarter: 2021Q4

REPORT INFORMATION
  Report Type: Spontaneous
  Country: GB (occurrence: GB)
  Receive Date: 20211130
  Receipt Date: 20211130
  Transmission Date: 20220303
  Serious: Yes (Hospitalization)
  Sender: FDA-Public Use
  Company Number: GB-MYLANLABS-2021M1087656

PATIENT
  Age: 51 Year
  Sex: Female

DRUGS (1)
  1. CLOZARIL [Suspect]
     Active Substance: CLOZAPINE
     Indication: Schizophrenia
     Dosage: UNK
     Route: 048
     Dates: start: 20121130, end: 20211119

REACTIONS (3)
  - Pneumonia [Unknown]
  - White blood cell count increased [Unknown]
  - Neutrophil count increased [Unknown]

NARRATIVE: CASE EVENT DATE: 20211124
